FAERS Safety Report 21660183 (Version 1)
Quarter: 2022Q4

REPORT INFORMATION
  Report Type: Spontaneous
  Country: MY (occurrence: None)
  Receive Date: 20221130
  Receipt Date: 20221130
  Transmission Date: 20230113
  Serious: Yes (Other)
  Sender: FDA-Public Use
  Company Number: MY-ROCHE-3225735

PATIENT
  Age: 25 Year
  Sex: Female

DRUGS (6)
  1. MABTHERA [Suspect]
     Active Substance: RITUXIMAB
     Indication: Diffuse large B-cell lymphoma stage IV
     Route: 065
     Dates: start: 20210820, end: 20221103
  2. CYCLOPHOSPHAMIDE [Suspect]
     Active Substance: CYCLOPHOSPHAMIDE
     Indication: Diffuse large B-cell lymphoma stage IV
     Route: 065
     Dates: start: 20210820, end: 20221103
  3. DOXORUBICIN [Suspect]
     Active Substance: DOXORUBICIN
     Indication: Diffuse large B-cell lymphoma stage IV
     Route: 065
     Dates: start: 20210820, end: 20221103
  4. VINCRISTINE [Suspect]
     Active Substance: VINCRISTINE
     Indication: Diffuse large B-cell lymphoma stage IV
     Route: 065
     Dates: start: 20210820, end: 20221103
  5. PREDNISOLONE [Suspect]
     Active Substance: PREDNISOLONE
     Indication: Diffuse large B-cell lymphoma stage IV
     Route: 065
     Dates: start: 20210820, end: 20221103
  6. ETOPOSIDE [Suspect]
     Active Substance: ETOPOSIDE
     Indication: Diffuse large B-cell lymphoma stage IV
     Route: 065

REACTIONS (2)
  - Diffuse large B-cell lymphoma refractory [Unknown]
  - Off label use [Unknown]
